FAERS Safety Report 5939135-0 (Version None)
Quarter: 2008Q4

REPORT INFORMATION
  Report Type: 
  Country: None (occurrence: None)
  Receive Date: 20081103
  Receipt Date: 20081030
  Transmission Date: 20090506
  Serious: Yes (Hospitalization)
  Sender: FDA-Public Use
  Company Number: FR-EISAI MEDICAL RESEARCH-E2020-03599-SPO-FR

PATIENT
  Sex: Female

DRUGS (6)
  1. ARICEPT [Suspect]
     Indication: DEMENTIA ALZHEIMER'S TYPE
     Route: 048
     Dates: start: 20081004, end: 20081008
  2. NOCTAMID [Suspect]
     Indication: INSOMNIA
     Route: 048
     Dates: start: 20081003, end: 20081008
  3. ZYPREXA [Suspect]
     Indication: SCHIZOPHRENIA
     Route: 048
     Dates: start: 20080929, end: 20081008
  4. STABLON [Suspect]
     Indication: DEPRESSION
     Dosage: UNKNOWN
     Route: 048
     Dates: end: 20081008
  5. ZOLPIDEM [Suspect]
     Indication: INSOMNIA
     Dosage: 1 UNIT
     Route: 048
     Dates: start: 20081001, end: 20081008
  6. XANAX [Suspect]
     Indication: ANXIETY
     Dosage: UNKNOWN
     Dates: end: 20081008

REACTIONS (1)
  - AGRANULOCYTOSIS [None]
